FAERS Safety Report 5412460-8 (Version None)
Quarter: 2007Q3

REPORT INFORMATION
  Report Type: 
  Country: None (occurrence: None)
  Receive Date: 20070813
  Receipt Date: 20070808
  Transmission Date: 20080115
  Serious: Yes (Hospitalization)
  Sender: FDA-Public Use
  Company Number: CAWYE675117MAY07

PATIENT
  Sex: Female
  Weight: 94 kg

DRUGS (11)
  1. TACROLIMUS [Suspect]
     Indication: RENAL TRANSPLANT
     Route: 048
     Dates: start: 20060716
  2. CELLCEPT [Suspect]
     Indication: RENAL TRANSPLANT
     Route: 048
     Dates: start: 20060716, end: 20061019
  3. CELLCEPT [Suspect]
     Route: 048
     Dates: start: 20061020
  4. METOPROLOL SUCCINATE [Concomitant]
     Indication: HYPERTENSION
     Route: 048
     Dates: start: 20060905
  5. NORVASC [Concomitant]
     Indication: HYPERTENSION
     Route: 048
     Dates: start: 20060905
  6. PANTOPRAZOLE SODIUM [Concomitant]
     Indication: PROPHYLAXIS
     Route: 048
     Dates: start: 20060716
  7. NOVORAPID [Concomitant]
     Indication: DIABETES MELLITUS
     Dosage: 34 UNITS
     Route: 058
     Dates: start: 20060912
  8. HUMULIN N [Concomitant]
     Indication: DIABETES MELLITUS
     Dosage: 12 UNITS
     Route: 058
     Dates: start: 20060912
  9. PREDNISONE TAB [Suspect]
     Indication: RENAL TRANSPLANT
     Route: 048
     Dates: start: 20060905
  10. FUROSEMIDE [Concomitant]
     Indication: OEDEMA PERIPHERAL
     Route: 048
  11. LIPITOR [Concomitant]
     Indication: HYPERLIPIDAEMIA
     Route: 048
     Dates: start: 20040101

REACTIONS (1)
  - HERPES ZOSTER [None]
